FAERS Safety Report 12416570 (Version 1)
Quarter: 2016Q2

REPORT INFORMATION
  Report Type: Spontaneous
  Country: NL (occurrence: NL)
  Receive Date: 20160530
  Receipt Date: 20160530
  Transmission Date: 20160815
  Serious: Yes (Other)
  Sender: FDA-Public Use
  Company Number: NL-JNJFOC-20130408742

PATIENT
  Age: 48 Year
  Sex: Female

DRUGS (10)
  1. TEMAZEPAM. [Concomitant]
     Active Substance: TEMAZEPAM
     Route: 065
     Dates: start: 20041004
  2. VENLAFAXINE HYDROCHLORIDE. [Interacting]
     Active Substance: VENLAFAXINE HYDROCHLORIDE
     Indication: PRODUCT USED FOR UNKNOWN INDICATION
     Route: 065
     Dates: start: 20020806
  3. BROOMHEXINE HCL KATWIJK [Concomitant]
     Route: 065
     Dates: start: 20120903
  4. DIAZEPAM. [Concomitant]
     Active Substance: DIAZEPAM
     Route: 065
     Dates: start: 19991129
  5. COLECALCIFEROL [Concomitant]
     Active Substance: CHOLECALCIFEROL
     Dosage: 400IE
     Route: 065
     Dates: start: 20120120
  6. MICROGYNON [Concomitant]
     Active Substance: ETHINYL ESTRADIOL\LEVONORGESTREL ACETATE
     Route: 065
  7. LORATADINE. [Concomitant]
     Active Substance: LORATADINE
     Route: 065
     Dates: start: 20120709
  8. RISPERDAL [Suspect]
     Active Substance: RISPERIDONE
     Indication: PRODUCT USED FOR UNKNOWN INDICATION
     Route: 065
     Dates: start: 20130315, end: 20130315
  9. NITRAZEPAM [Concomitant]
     Active Substance: NITRAZEPAM
     Route: 065
     Dates: start: 20120730
  10. DOMPERIDONE [Concomitant]
     Active Substance: DOMPERIDONE
     Route: 065
     Dates: start: 20120924

REACTIONS (11)
  - Ear pain [Recovering/Resolving]
  - Lymphadenopathy [Recovering/Resolving]
  - Serotonin syndrome [Unknown]
  - Erythema [Recovering/Resolving]
  - Poor quality sleep [Recovering/Resolving]
  - Diarrhoea [Recovering/Resolving]
  - Tremor [Recovering/Resolving]
  - Polyuria [Recovering/Resolving]
  - Drug interaction [Unknown]
  - Oropharyngeal pain [Recovering/Resolving]
  - Vomiting [Recovering/Resolving]

NARRATIVE: CASE EVENT DATE: 20130314
